FAERS Safety Report 12237736 (Version 1)
Quarter: 2016Q2

REPORT INFORMATION
  Report Type: Report from Study
  Country: JP (occurrence: JP)
  Receive Date: 20160405
  Receipt Date: 20160405
  Transmission Date: 20160815
  Serious: Yes (Hospitalization)
  Sender: FDA-Public Use
  Company Number: JP-NOVOPROD-420556

PATIENT
  Age: 65 Year
  Sex: Female
  Weight: 60 kg

DRUGS (6)
  1. ANTEBATE [Concomitant]
     Active Substance: BETAMETHASONE DIPROPIONATE
     Dosage: 1 G, QD
     Route: 062
  2. TRESIBA CHU [Suspect]
     Active Substance: INSULIN DEGLUDEC
     Dosage: 16 U, QD
     Route: 058
     Dates: start: 20140321
  3. HUMALOG [Concomitant]
     Active Substance: INSULIN LISPRO
     Dosage: 74 U, QD (18-28-28U/DAY)
     Route: 058
     Dates: start: 20140513
  4. HUMALOG [Concomitant]
     Active Substance: INSULIN LISPRO
     Dosage: 32 U, QD (12-10-10U/DAY)
     Route: 058
  5. TRESIBA CHU [Suspect]
     Active Substance: INSULIN DEGLUDEC
     Indication: TYPE 2 DIABETES MELLITUS
     Dosage: 12 U, QD (MORNING)
     Route: 058
     Dates: start: 20140224
  6. HUMALOG [Concomitant]
     Active Substance: INSULIN LISPRO
     Indication: TYPE 2 DIABETES MELLITUS
     Dosage: 32 IU, QD( 12-10-10 IU/DAY)
     Route: 058

REACTIONS (2)
  - Sudden hearing loss [Not Recovered/Not Resolved]
  - Hyperglycaemia [Not Recovered/Not Resolved]

NARRATIVE: CASE EVENT DATE: 20140501
